FAERS Safety Report 6419830-X (Version None)
Quarter: 2009Q4

REPORT INFORMATION
  Report Type: 
  Country: None (occurrence: None)
  Receive Date: 20091029
  Receipt Date: 20091015
  Transmission Date: 20100525
  Serious: Yes (Death)
  Sender: FDA-Public Use
  Company Number: MA-GENENTECH-290278

PATIENT
  Age: 19 Year
  Sex: Male

DRUGS (9)
  1. RITUXIMAB [Suspect]
     Indication: BURKITT'S LYMPHOMA
     Dosage: 375 MG, UNK
     Route: 042
     Dates: start: 20090818, end: 20090823
  2. CYCLOPHOSPHAMIDE [Suspect]
     Indication: BURKITT'S LYMPHOMA
     Dosage: 500 MG, UNK
     Route: 042
     Dates: start: 20090819, end: 20090821
  3. VINCRISTINE [Suspect]
     Indication: BURKITT'S LYMPHOMA
     Dosage: 2 MG, UNK
     Route: 042
     Dates: start: 20090818, end: 20090818
  4. DOXORUBICIN HCL [Concomitant]
     Indication: DRUG USE FOR UNKNOWN INDICATION
     Dosage: UNK
     Dates: start: 20090819, end: 20090819
  5. METHYLPREDNISOLONE 4MG TAB [Concomitant]
     Indication: DRUG USE FOR UNKNOWN INDICATION
     Dosage: UNK
     Dates: start: 20090818, end: 20090823
  6. METHOTREXATE [Concomitant]
     Indication: DRUG USE FOR UNKNOWN INDICATION
     Dosage: UNK
     Dates: start: 20090818, end: 20090818
  7. FOLINIC ACID [Concomitant]
     Indication: DRUG USE FOR UNKNOWN INDICATION
     Dosage: UNK
     Dates: start: 20090819, end: 20090822
  8. CYTARABINE [Concomitant]
     Indication: DRUG USE FOR UNKNOWN INDICATION
     Dosage: UNK
     Dates: start: 20090819, end: 20090823
  9. METHOTREXATE [Concomitant]
     Dosage: UNK
     Dates: start: 20090819, end: 20090823

REACTIONS (3)
  - FEBRILE NEUTROPENIA [None]
  - PULMONARY ALVEOLAR HAEMORRHAGE [None]
  - SEPTIC SHOCK [None]
